FAERS Safety Report 7514804-X (Version None)
Quarter: 2011Q2

REPORT INFORMATION
  Report Type: 
  Country: None (occurrence: None)
  Receive Date: 20110526
  Receipt Date: 20110526
  Transmission Date: 20111010
  Serious: Yes (Hospitalization)
  Sender: FDA-Public Use
  Company Number: None

PATIENT
  Sex: Female
  Weight: 73.7 kg

DRUGS (2)
  1. TAXOL [Suspect]
     Dosage: 251 MG
     Dates: end: 20110413
  2. CISPLATIN [Suspect]
     Dosage: 140 MG
     Dates: end: 20110412

REACTIONS (6)
  - COLITIS [None]
  - ELECTROCARDIOGRAM QT PROLONGED [None]
  - FANCONI SYNDROME [None]
  - RENAL FAILURE ACUTE [None]
  - PANCREATITIS ACUTE [None]
  - ELECTROLYTE IMBALANCE [None]
